FAERS Safety Report 19439893 (Version 1)
Quarter: 2021Q2

REPORT INFORMATION
  Report Type: Spontaneous
  Country: US (occurrence: US)
  Receive Date: 20210620
  Receipt Date: 20210620
  Transmission Date: 20210717
  Serious: No
  Sender: FDA-Public Use
  Company Number: US-SA-2021SA198810

PATIENT
  Age: 60 Year
  Sex: Female

DRUGS (11)
  1. APPLE CIDER VINEGAR [Concomitant]
     Active Substance: APPLE CIDER VINEGAR
     Dosage: 300 MG
  2. BIOTIN [Concomitant]
     Active Substance: BIOTIN
     Dosage: 2500 UG
  3. FOLIC ACID. [Concomitant]
     Active Substance: FOLIC ACID
  4. VITAMIN E [Concomitant]
     Active Substance: .ALPHA.-TOCOPHEROL
     Dosage: 1000 UN STRENGTH
  5. HAIR, SKIN + NAIL COMPLEX [Concomitant]
  6. SUPER B COMPLEX [VITAMIN B COMPLEX] [Concomitant]
     Dosage: 400 UG
  7. VITAMIN C [Concomitant]
     Active Substance: ASCORBIC ACID
     Dosage: 1000 MG
  8. VITAMIN D2 [Concomitant]
     Active Substance: ERGOCALCIFEROL
     Dosage: 1250 UG
  9. PROBIOTICS NOS [Concomitant]
     Active Substance: PROBIOTICS NOS
     Dosage: 250 UG
  10. AUBAGIO [Suspect]
     Active Substance: TERIFLUNOMIDE
     Indication: MULTIPLE SCLEROSIS
     Dosage: 14 MG, QD
     Route: 048
     Dates: start: 20210528
  11. B12 ACTIVE [Concomitant]
     Dosage: 1000 UG

REACTIONS (4)
  - Anger [Unknown]
  - Mood swings [Unknown]
  - Gait disturbance [Unknown]
  - Pain [Unknown]
